FAERS Safety Report 15785225 (Version 1)
Quarter: 2018Q4

REPORT INFORMATION
  Report Type: Spontaneous
  Country: US (occurrence: US)
  Receive Date: 20181228
  Receipt Date: 20181228
  Transmission Date: 20190205
  Serious: No
  Sender: FDA-Public Use
  Company Number: None

PATIENT

DRUGS (2)
  1. BUMETANIDE. [Suspect]
     Active Substance: BUMETANIDE
  2. ENTRESTO [Suspect]
     Active Substance: SACUBITRIL\VALSARTAN

REACTIONS (7)
  - Abdominal discomfort [None]
  - Hiccups [None]
  - Wrong product administered [None]
  - Accidental overdose [None]
  - Hypotension [None]
  - Product dispensing error [None]
  - Gait disturbance [None]

NARRATIVE: CASE EVENT DATE: 2018
